FAERS Safety Report 17386691 (Version 1)
Quarter: 2020Q1

REPORT INFORMATION
  Report Type: Spontaneous
  Country: US (occurrence: US)
  Receive Date: 20200206
  Receipt Date: 20200206
  Transmission Date: 20200409
  Serious: Yes (Death, Life-Threatening, Hospitalization, Other)
  Sender: FDA-Public Use
  Company Number: US-JUBILANT CADISTA PHARMACEUTICALS-2020JUB00049

PATIENT
  Age: 56 Year
  Sex: Female

DRUGS (2)
  1. ESTROGEN REPLACEMENT THERAPY [Suspect]
     Active Substance: ESTROGENS
     Indication: MENOPAUSE
     Route: 065
  2. ESCITALOPRAM [Suspect]
     Active Substance: ESCITALOPRAM OXALATE
     Indication: DEPRESSION
     Dosage: 20 MG, 1X/DAY
     Route: 065

REACTIONS (5)
  - Tumour haemorrhage [Fatal]
  - Areflexia [Not Recovered/Not Resolved]
  - Brain compression [Recovered/Resolved]
  - Arterial spasm [Not Recovered/Not Resolved]
  - Coma [Fatal]
